FAERS Safety Report 24380161 (Version 1)
Quarter: 2024Q3

REPORT INFORMATION
  Report Type: Spontaneous
  Country: US (occurrence: US)
  Receive Date: 20240930
  Receipt Date: 20240930
  Transmission Date: 20241016
  Serious: Yes (Life-Threatening, Hospitalization)
  Sender: NOVARTIS
  Company Number: US-002147023-NVSC2024US193422

PATIENT
  Age: 0 Year
  Sex: Female

DRUGS (1)
  1. MEKINIST [Suspect]
     Active Substance: TRAMETINIB DIMETHYL SULFOXIDE
     Indication: Neurofibroma
     Dosage: 0.16 MG, QD (SOLUTION)
     Route: 048
     Dates: start: 20240216

REACTIONS (5)
  - Acute respiratory failure [Recovered/Resolved]
  - Metapneumovirus infection [Recovered/Resolved]
  - Pneumonia [Recovered/Resolved]
  - Obstructive airways disorder [Recovered/Resolved]
  - Product use in unapproved indication [Unknown]

NARRATIVE: CASE EVENT DATE: 20240526
